FAERS Safety Report 17204531 (Version 3)
Quarter: 2021Q2

REPORT INFORMATION
  Report Type: Report from Study
  Country: JP (occurrence: JP)
  Receive Date: 20191226
  Receipt Date: 20210531
  Transmission Date: 20210716
  Serious: Yes (Death, Other)
  Sender: FDA-Public Use
  Company Number: JP-009507513-1912JPN010817

PATIENT
  Age: 81 Year
  Sex: Male
  Weight: 47 kg

DRUGS (1)
  1. FIDAXOMICIN [Suspect]
     Active Substance: FIDAXOMICIN
     Indication: CLOSTRIDIUM DIFFICILE COLITIS
     Dosage: 200 MILLIGRAM, Q12H
     Route: 048
     Dates: start: 20191213, end: 20191213

REACTIONS (2)
  - Pancreatitis acute [Fatal]
  - Cardiac failure [Fatal]

NARRATIVE: CASE EVENT DATE: 20191214
